FAERS Safety Report 13774970 (Version 6)
Quarter: 2017Q3

REPORT INFORMATION
  Report Type: Report from Study
  Country: CA (occurrence: CA)
  Receive Date: 20170720
  Receipt Date: 20170928
  Transmission Date: 20171127
  Serious: Yes (Hospitalization, Other)
  Sender: FDA-Public Use
  Company Number: PHHY2017CA105523

PATIENT
  Age: 56 Year
  Sex: Female

DRUGS (13)
  1. TRAMACET [Concomitant]
     Active Substance: ACETAMINOPHEN\TRAMADOL
     Indication: PRODUCT USED FOR UNKNOWN INDICATION
     Route: 065
  2. SANDOSTATIN LAR DEPOT [Suspect]
     Active Substance: OCTREOTIDE ACETATE
     Dosage: 20 MG, (EVERY 10 DAYS)
     Route: 030
  3. NORTRIPTYLINE [Concomitant]
     Active Substance: NORTRIPTYLINE
     Indication: PRODUCT USED FOR UNKNOWN INDICATION
     Dosage: FOR 03 WEEKS
     Route: 065
     Dates: start: 2017
  4. AVAPRO [Concomitant]
     Active Substance: IRBESARTAN
     Indication: PRODUCT USED FOR UNKNOWN INDICATION
     Dosage: 300 MG, QD
     Route: 065
  5. PARIET [Concomitant]
     Active Substance: RABEPRAZOLE SODIUM
     Indication: PRODUCT USED FOR UNKNOWN INDICATION
     Dosage: 20 MG, QD
     Route: 065
  6. NABILONE [Concomitant]
     Active Substance: NABILONE
     Indication: PRODUCT USED FOR UNKNOWN INDICATION
     Dosage: 0.5 MG, QD (AT BED TIME)
     Route: 065
     Dates: start: 2017
  7. MORPHINE SULPHATE [Concomitant]
     Active Substance: MORPHINE SULFATE
     Indication: PRODUCT USED FOR UNKNOWN INDICATION
     Dosage: 5 MG, PRN
     Route: 065
  8. SANDOSTATIN LAR DEPOT [Suspect]
     Active Substance: OCTREOTIDE ACETATE
     Indication: ACROMEGALY
     Dosage: 20 MG, QW2 (EVERY 10 DAYS)
     Route: 030
     Dates: start: 20080604
  9. HYDROCHLOROTHIAZIDE. [Concomitant]
     Active Substance: HYDROCHLOROTHIAZIDE
     Indication: PRODUCT USED FOR UNKNOWN INDICATION
     Dosage: 25 MG, QD
     Route: 065
  10. MS CONTIN [Concomitant]
     Active Substance: MORPHINE SULFATE
     Indication: PRODUCT USED FOR UNKNOWN INDICATION
     Dosage: 15 MG, BID
     Route: 065
  11. TRAMADOL HYDROCHLORIDE. [Concomitant]
     Active Substance: TRAMADOL HYDROCHLORIDE
     Indication: PRODUCT USED FOR UNKNOWN INDICATION
     Route: 065
  12. SANDOSTATIN LAR DEPOT [Suspect]
     Active Substance: OCTREOTIDE ACETATE
     Dosage: 20 MG, QW2 (EVERY 2 WEEKS)
     Route: 030
  13. SANDOSTATIN LAR DEPOT [Suspect]
     Active Substance: OCTREOTIDE ACETATE
     Dosage: 20 MG, (EVERY 10 DAYS)
     Route: 030
     Dates: start: 20140310

REACTIONS (15)
  - Blood urine present [Unknown]
  - Urinary tract infection [Unknown]
  - Rectal haemorrhage [Recovering/Resolving]
  - Fall [Recovering/Resolving]
  - Contusion [Unknown]
  - Inappropriate schedule of drug administration [Unknown]
  - Post procedural complication [Unknown]
  - Tooth abscess [Unknown]
  - Muscle strain [Unknown]
  - Nausea [Unknown]
  - Colitis [Recovering/Resolving]
  - Dizziness [Unknown]
  - Malaise [Recovering/Resolving]
  - Tooth fracture [Unknown]
  - Haematoma [Unknown]

NARRATIVE: CASE EVENT DATE: 20080604
